FAERS Safety Report 12233126 (Version 1)
Quarter: 2016Q2

REPORT INFORMATION
  Report Type: Report from Study
  Country: LB (occurrence: LB)
  Receive Date: 20160404
  Receipt Date: 20160404
  Transmission Date: 20160815
  Serious: Yes (Other)
  Sender: FDA-Public Use
  Company Number: LB-ROCHE-1735744

PATIENT
  Age: 69 Year
  Sex: Male

DRUGS (2)
  1. PEG-INTERFERON ALFA 2A [Suspect]
     Active Substance: PEGINTERFERON ALFA-2A
     Indication: CHRONIC HEPATITIS C
     Route: 058
     Dates: start: 20110107, end: 20111208
  2. RIBAVIRIN. [Suspect]
     Active Substance: RIBAVIRIN
     Indication: CHRONIC HEPATITIS C
     Route: 048
     Dates: start: 20110107, end: 20111208

REACTIONS (1)
  - Pancytopenia [Recovered/Resolved]

NARRATIVE: CASE EVENT DATE: 20110610
